FAERS Safety Report 4367738-6 (Version None)
Quarter: 2004Q2

REPORT INFORMATION
  Report Type: 
  Country: None (occurrence: None)
  Receive Date: 20040527
  Receipt Date: 20030603
  Transmission Date: 20050107
  Serious: Yes (Hospitalization, Disabling)
  Sender: FDA-Public Use
  Company Number: 339621

PATIENT
  Age: 41 Year
  Sex: Male
  Weight: 79.4 kg

DRUGS (1)
  1. LARIAM [Suspect]
     Indication: MALARIA PROPHYLAXIS
     Dosage: 250 MG 1 PER WEEK ORAL
     Route: 048
     Dates: start: 20030421, end: 20030512

REACTIONS (8)
  - ADVERSE EVENT [None]
  - ANXIETY [None]
  - CONFUSIONAL STATE [None]
  - DEPRESSION [None]
  - DISTURBANCE IN ATTENTION [None]
  - NIGHT SWEATS [None]
  - PALPITATIONS [None]
  - SUICIDAL IDEATION [None]
